FAERS Safety Report 18286199 (Version 1)
Quarter: 2020Q3

REPORT INFORMATION
  Report Type: Spontaneous
  Country: US (occurrence: US)
  Receive Date: 20200919
  Receipt Date: 20200919
  Transmission Date: 20201103
  Serious: No
  Sender: FDA-Public Use
  Company Number: US-TEVA-2020-US-1828527

PATIENT
  Sex: Male

DRUGS (22)
  1. APIXABAN [Concomitant]
     Active Substance: APIXABAN
  2. MELALEUCA VITAMINS [Concomitant]
  3. MELALEUCA FISH OIL [Concomitant]
  4. SPIRIVA [Concomitant]
     Active Substance: TIOTROPIUM BROMIDE MONOHYDRATE
  5. METOPROLOL SUCCINATE. [Concomitant]
     Active Substance: METOPROLOL SUCCINATE
  6. ELIQUIS [Concomitant]
     Active Substance: APIXABAN
  7. TAMSULOSIN [Concomitant]
     Active Substance: TAMSULOSIN
  8. OMEPRAZOLE. [Concomitant]
     Active Substance: OMEPRAZOLE
  9. TRAZODONE [Concomitant]
     Active Substance: TRAZODONE HYDROCHLORIDE
  10. DIGOXIN. [Concomitant]
     Active Substance: DIGOXIN
  11. AMPYRA [Concomitant]
     Active Substance: DALFAMPRIDINE
  12. CALCIUM [Concomitant]
     Active Substance: CALCIUM
  13. CETIRIZINE HCL [Concomitant]
     Active Substance: CETIRIZINE HYDROCHLORIDE
  14. SYMBICORT [Concomitant]
     Active Substance: BUDESONIDE\FORMOTEROL FUMARATE DIHYDRATE
  15. COPAXONE [Suspect]
     Active Substance: GLATIRAMER ACETATE
     Indication: MULTIPLE SCLEROSIS
     Dosage: FORM STRENGTH: UNKNOWN
     Route: 065
  16. DOFETILIDE. [Concomitant]
     Active Substance: DOFETILIDE
  17. VITAMIN D3 [Concomitant]
     Active Substance: CHOLECALCIFEROL
  18. FINASTERIDE. [Concomitant]
     Active Substance: FINASTERIDE
  19. METOPROLOL TARTRATE. [Concomitant]
     Active Substance: METOPROLOL TARTRATE
  20. ATORVASTATIN [Concomitant]
     Active Substance: ATORVASTATIN
  21. GUAIFENESIN. [Concomitant]
     Active Substance: GUAIFENESIN
  22. DOCUSATE [Concomitant]
     Active Substance: DOCUSATE

REACTIONS (1)
  - Urticaria [Recovered/Resolved]
